FAERS Safety Report 5796527-0 (Version None)
Quarter: 2008Q3

REPORT INFORMATION
  Report Type: 
  Country: None (occurrence: None)
  Receive Date: 20080701
  Receipt Date: 20080627
  Transmission Date: 20090109
  Serious: Yes (Life-Threatening, Other)
  Sender: FDA-Public Use
  Company Number: PHEH2008US04332

PATIENT
  Sex: Female

DRUGS (2)
  1. ESTRADERM [Suspect]
     Indication: HORMONE REPLACEMENT THERAPY
     Dosage: 0.1 UNK, TWICE WEEKLY
     Route: 062
  2. ESTRADERM [Suspect]
     Dosage: 0.05 MG, TWICE WEEKLY
     Route: 062

REACTIONS (16)
  - ABDOMINAL DISTENSION [None]
  - ANGER [None]
  - ANXIETY [None]
  - BRUXISM [None]
  - CHILLS [None]
  - CRYING [None]
  - DEPRESSION [None]
  - DRY EYE [None]
  - HEADACHE [None]
  - HOT FLUSH [None]
  - IRRITABILITY [None]
  - LIBIDO DECREASED [None]
  - NERVOUSNESS [None]
  - PALPITATIONS [None]
  - PANIC REACTION [None]
  - SUICIDAL IDEATION [None]
